FAERS Safety Report 9181583 (Version 2)
Quarter: 2013Q2

REPORT INFORMATION
  Report Type: Spontaneous
  Country: US (occurrence: US)
  Receive Date: 20130322
  Receipt Date: 20130530
  Transmission Date: 20140414
  Serious: Yes (Other)
  Sender: FDA-Public Use
  Company Number: US-ELI_LILLY_AND_COMPANY-US201303004404

PATIENT
  Sex: Female
  Weight: 68.03 kg

DRUGS (6)
  1. FORTEO [Suspect]
     Indication: OSTEOPOROSIS
     Dosage: 20 UG, QD
     Route: 058
     Dates: start: 201011, end: 20130120
  2. LEVOTHYROXINE [Concomitant]
     Dosage: 100 UG, UNK
  3. DESVENLAFAXINE [Concomitant]
     Dosage: 50 MG, UNK
  4. MULTIVITAMIN [Concomitant]
  5. VITAMIN D [Concomitant]
  6. CALCIUM [Concomitant]

REACTIONS (3)
  - Meningioma [Unknown]
  - Nodal osteoarthritis [Recovered/Resolved with Sequelae]
  - Trigger finger [Recovered/Resolved]
